FAERS Safety Report 20767217 (Version 3)
Quarter: 2022Q3

REPORT INFORMATION
  Report Type: Report from Study
  Country: US (occurrence: US)
  Receive Date: 20220429
  Receipt Date: 20220718
  Transmission Date: 20221026
  Serious: Yes (Hospitalization, Other)
  Sender: FDA-Public Use
  Company Number: US-BRISTOL-MYERS SQUIBB COMPANY-2022-017325

PATIENT
  Age: 64 Year
  Sex: Female
  Weight: 71.2 kg

DRUGS (37)
  1. NIVOLUMAB [Suspect]
     Active Substance: NIVOLUMAB
     Indication: Non-small cell lung cancer
     Route: 042
     Dates: start: 20220126, end: 20220302
  2. SITRAVATINIB [Suspect]
     Active Substance: SITRAVATINIB
     Indication: Non-small cell lung cancer
     Route: 048
     Dates: start: 20220126
  3. FERROUS SULFATE [Concomitant]
     Active Substance: FERROUS SULFATE
     Dates: start: 20191016
  4. AMBIEN [Concomitant]
     Active Substance: ZOLPIDEM TARTRATE
     Dates: start: 20210305
  5. DECADRON [Concomitant]
     Active Substance: DEXAMETHASONE
  6. PROVENTIL [Concomitant]
     Active Substance: ALBUTEROL
     Dates: start: 20201230
  7. ALLOPURINOL [Concomitant]
     Active Substance: ALLOPURINOL
     Dates: start: 20200804
  8. LIPITOR [Concomitant]
     Active Substance: ATORVASTATIN CALCIUM
     Dates: start: 20190820
  9. VITAMIN D3 [Concomitant]
     Active Substance: CHOLECALCIFEROL
     Dates: start: 20200923
  10. FOLIC ACID [Concomitant]
     Active Substance: FOLIC ACID
     Dates: start: 20191016
  11. OLANZAPINE [Concomitant]
     Active Substance: OLANZAPINE
     Dates: start: 20211207
  12. ROXICODONE [Concomitant]
     Active Substance: OXYCODONE HYDROCHLORIDE
     Dates: start: 20220105
  13. PERCOCET [Concomitant]
     Active Substance: ACETAMINOPHEN\OXYCODONE HYDROCHLORIDE
     Dates: start: 20201215
  14. BUTRANS [Concomitant]
     Active Substance: BUPRENORPHINE
     Dates: start: 20211203
  15. PROTONIX [Concomitant]
     Active Substance: PANTOPRAZOLE SODIUM
     Dates: start: 20220221
  16. TUMS [Concomitant]
     Active Substance: CALCIUM CARBONATE
     Dates: start: 20220227
  17. SODIUM CHLORIDE [Concomitant]
     Active Substance: SODIUM CHLORIDE
     Dates: start: 20220221
  18. SODIUM CHLORIDE [Concomitant]
     Active Substance: SODIUM CHLORIDE
  19. PROCARDIA [Concomitant]
     Active Substance: NIFEDIPINE
     Dates: start: 20211210
  20. OXYCODONE [Concomitant]
     Active Substance: OXYCODONE
     Dates: start: 20220105
  21. ALBUTEROL [Concomitant]
     Active Substance: ALBUTEROL
     Dates: start: 20201230
  22. BISACODYL [Concomitant]
     Active Substance: BISACODYL
     Dates: start: 20220301, end: 20220301
  23. BELBUCA [Concomitant]
     Active Substance: BUPRENORPHINE HYDROCHLORIDE
  24. BENADRYL [Concomitant]
     Active Substance: DIPHENHYDRAMINE HYDROCHLORIDE
  25. GABAPENTIN [Concomitant]
     Active Substance: GABAPENTIN
     Dates: start: 20220221, end: 20220223
  26. GABAPENTIN [Concomitant]
     Active Substance: GABAPENTIN
     Dates: start: 20220224, end: 20220301
  27. HEPARIN [Concomitant]
     Active Substance: HEPARIN SODIUM
  28. DILAUDID [Concomitant]
     Active Substance: HYDROMORPHONE HYDROCHLORIDE
     Dates: start: 20220221, end: 20220223
  29. DILAUDID [Concomitant]
     Active Substance: HYDROMORPHONE HYDROCHLORIDE
     Dates: start: 20220223, end: 20220223
  30. DILAUDID [Concomitant]
     Active Substance: HYDROMORPHONE HYDROCHLORIDE
     Dates: start: 20220223, end: 20220225
  31. DILAUDID [Concomitant]
     Active Substance: HYDROMORPHONE HYDROCHLORIDE
     Dates: start: 20220223, end: 20220227
  32. TORADOL [Concomitant]
     Active Substance: KETOROLAC TROMETHAMINE
     Dates: start: 20220223, end: 20220325
  33. SOLU-MEDROL [Concomitant]
     Active Substance: METHYLPREDNISOLONE SODIUM SUCCINATE
     Dates: start: 20220221, end: 20220301
  34. DELTASONE [Concomitant]
     Active Substance: PREDNISONE
     Dates: start: 20211103
  35. DELTASONE [Concomitant]
     Active Substance: PREDNISONE
     Dates: start: 20220302, end: 20220307
  36. INSULIN LISPRO [Concomitant]
     Active Substance: INSULIN LISPRO
     Dates: start: 20210331
  37. GLYCOLAX [Concomitant]
     Active Substance: POLYETHYLENE GLYCOL 3350
     Dates: start: 20220228, end: 20220301

REACTIONS (1)
  - Appendicitis perforated [Recovered/Resolved]

NARRATIVE: CASE EVENT DATE: 20220325
